FAERS Safety Report 9888783 (Version 1)
Quarter: 2014Q1

REPORT INFORMATION
  Report Type: Spontaneous
  Country: CA (occurrence: CA)
  Receive Date: 20140211
  Receipt Date: 20140211
  Transmission Date: 20141002
  Serious: Yes (Other)
  Sender: FDA-Public Use
  Company Number: CA-ASTRAZENECA-2014SE08052

PATIENT
  Age: 65 Year
  Sex: Female

DRUGS (9)
  1. SEROQUEL XR [Suspect]
     Route: 048
  2. MIRTAZAPINE [Suspect]
     Route: 048
  3. CALCIUM CARBONATE [Concomitant]
  4. CITALOPRAM [Concomitant]
  5. DEXAMETHASONE [Concomitant]
  6. LANSOPRAZOLE [Concomitant]
  7. ONDANSETRON [Concomitant]
  8. VITAMIN D [Concomitant]
  9. WARFARIN [Concomitant]

REACTIONS (4)
  - Thrombosis [Unknown]
  - Non-cardiac chest pain [Unknown]
  - Pain [Unknown]
  - Hyperhidrosis [Unknown]
